FAERS Safety Report 9308009 (Version 1)
Quarter: 2013Q2

REPORT INFORMATION
  Report Type: Spontaneous
  Country: US (occurrence: US)
  Receive Date: 20130524
  Receipt Date: 20130524
  Transmission Date: 20140414
  Serious: No
  Sender: FDA-Public Use
  Company Number: US-PFIZER INC-2012207923

PATIENT
  Age: 47 Year
  Sex: Female

DRUGS (1)
  1. MOTRIN IB [Suspect]
     Indication: BACK PAIN
     Dosage: 200 MG, ONCE OR TWICE A DAY, ONCE OR TWICE A WEEK
     Route: 048
     Dates: start: 20110901, end: 201109

REACTIONS (2)
  - Chills [Recovered/Resolved]
  - Tremor [Recovered/Resolved]
